FAERS Safety Report 18087329 (Version 3)
Quarter: 2021Q2

REPORT INFORMATION
  Report Type: Spontaneous
  Country: US (occurrence: US)
  Receive Date: 20200729
  Receipt Date: 20210615
  Transmission Date: 20210717
  Serious: Yes (Other)
  Sender: FDA-Public Use
  Company Number: US-GILEAD-2020-0486063

PATIENT
  Sex: Male

DRUGS (2)
  1. VIREAD [Suspect]
     Active Substance: TENOFOVIR DISOPROXIL FUMARATE
     Indication: HIV INFECTION
     Dosage: UNK
     Route: 048
     Dates: start: 200501, end: 201112
  2. VIREAD [Suspect]
     Active Substance: TENOFOVIR DISOPROXIL FUMARATE
     Dosage: UNK
     Route: 048
     Dates: start: 2008, end: 2011

REACTIONS (12)
  - Bone loss [Unknown]
  - Renal impairment [Recovered/Resolved]
  - Osteoporosis [Unknown]
  - Rib fracture [Not Recovered/Not Resolved]
  - Osteonecrosis [Unknown]
  - Bone density decreased [Unknown]
  - Proteinuria [Unknown]
  - Blood creatinine increased [Unknown]
  - Chronic kidney disease [Unknown]
  - Osteopenia [Not Recovered/Not Resolved]
  - Albuminuria [Unknown]
  - Multiple fractures [Unknown]

NARRATIVE: CASE EVENT DATE: 2009
